FAERS Safety Report 25531164 (Version 1)
Quarter: 2025Q3

REPORT INFORMATION
  Report Type: Spontaneous
  Country: US (occurrence: US)
  Receive Date: 20250708
  Receipt Date: 20250708
  Transmission Date: 20251020
  Serious: Yes (Hospitalization, Other)
  Sender: BIOMARIN
  Company Number: US-SA-2025SA183434

PATIENT
  Age: 1 Year
  Sex: Male

DRUGS (1)
  1. LARONIDASE [Suspect]
     Active Substance: LARONIDASE
     Indication: Mucopolysaccharidosis I

REACTIONS (3)
  - Sepsis [Recovering/Resolving]
  - Post procedural complication [Recovering/Resolving]
  - Off label use [Unknown]

NARRATIVE: CASE EVENT DATE: 20250601
